FAERS Safety Report 8082195-4 (Version None)
Quarter: 2012Q1

REPORT INFORMATION
  Report Type: 
  Country: None (occurrence: None)
  Receive Date: 20120127
  Receipt Date: 20110121
  Transmission Date: 20120608
  Serious: No
  Sender: FDA-Public Use
  Company Number: US-ABBOTT-11P-163-0699943-00

PATIENT
  Age: 60 Year
  Sex: Male

DRUGS (10)
  1. ZETIA [Concomitant]
     Indication: BLOOD CHOLESTEROL INCREASED
     Dosage: 10MG DAILY
  2. CITALOPRAM [Concomitant]
     Indication: DEPRESSION
     Dosage: 2-40MG TABS DAILY
  3. HUMIRA [Suspect]
     Indication: PSORIATIC ARTHROPATHY
     Dates: start: 20070101
  4. TRAZODONE HCL [Concomitant]
     Indication: INSOMNIA
     Dosage: 2-300MG TABS AT HS
     Route: 048
  5. BACLOFEN [Concomitant]
     Indication: MUSCLE SPASMS
     Dosage: 2-10MG TABS IN AM + PM
  6. METHOTREXATE [Concomitant]
     Indication: PRODUCT USED FOR UNKNOWN INDICATION
     Dosage: 8-2.5MG TABS WEEKLY
     Route: 048
  7. HYDROCHLOROTHIAZIDE [Concomitant]
     Indication: HYPERTENSION
     Dosage: 25MG DAILY
  8. LISINOPRIL [Concomitant]
     Indication: BLOOD PRESSURE ABNORMAL
     Dosage: 20MG DAILY
  9. PROTONIX [Concomitant]
     Indication: GASTROOESOPHAGEAL REFLUX DISEASE
  10. DIAZEPAM [Concomitant]
     Indication: ANXIETY
     Dosage: 3-10MG TABS AT HS + 2-10MG TABS IN AM

REACTIONS (1)
  - RENAL FUNCTION TEST ABNORMAL [None]
